FAERS Safety Report 5657583-3 (Version None)
Quarter: 2008Q1

REPORT INFORMATION
  Report Type: 
  Country: None (occurrence: None)
  Receive Date: 20080310
  Receipt Date: 20080227
  Transmission Date: 20080703
  Serious: Yes (Hospitalization)
  Sender: FDA-Public Use
  Company Number: PHBS2008US02979

PATIENT
  Age: 13 Year
  Sex: Female

DRUGS (6)
  1. CLOZAPINE [Suspect]
     Indication: SCHIZOPHRENIA
     Dosage: 25 MG, BID
  2. CLOZAPINE [Suspect]
     Dosage: UP TO 125 MG/DAY
  3. CLOZAPINE [Suspect]
     Dosage: 50 MG IN THE MORNING 175 MG AT NIGHT
  4. CLONAZEPAM [Concomitant]
     Dosage: 0.5 MG, BID
  5. CLONAZEPAM [Concomitant]
     Dosage: 0.25 MG AT NIGHT
  6. CLONAZEPAM [Concomitant]
     Dosage: 0.5 MG, BID

REACTIONS (9)
  - DEHYDRATION [None]
  - DYSPHAGIA [None]
  - EATING DISORDER [None]
  - MEMORY IMPAIRMENT [None]
  - PSYCHOMOTOR RETARDATION [None]
  - SALIVARY HYPERSECRETION [None]
  - SPEECH DISORDER [None]
  - THOUGHT BLOCKING [None]
  - WEIGHT DECREASED [None]
